FAERS Safety Report 7121790-3 (Version None)
Quarter: 2010Q4

REPORT INFORMATION
  Report Type: 
  Country: None (occurrence: None)
  Receive Date: 20101124
  Receipt Date: 20101109
  Transmission Date: 20110411
  Serious: Yes (Hospitalization, Other)
  Sender: FDA-Public Use
  Company Number: US-AMGEN-USASP2010004702

PATIENT

DRUGS (2)
  1. ENBREL [Suspect]
     Indication: RHEUMATOID ARTHRITIS
     Dates: start: 20070301
  2. PLAQUENIL [Concomitant]

REACTIONS (8)
  - ARTHRALGIA [None]
  - BORDERLINE GLAUCOMA [None]
  - CATARACT [None]
  - CHONDROPATHY [None]
  - HYPOAESTHESIA [None]
  - NASOPHARYNGITIS [None]
  - PERIPHERAL COLDNESS [None]
  - PYREXIA [None]
